FAERS Safety Report 6551703-4 (Version None)
Quarter: 2010Q1

REPORT INFORMATION
  Report Type: 
  Country: None (occurrence: None)
  Receive Date: 20100126
  Receipt Date: 20100119
  Transmission Date: 20100710
  Serious: Yes (Other)
  Sender: FDA-Public Use
  Company Number: US-ELI_LILLY_AND_COMPANY-US201001003753

PATIENT
  Sex: Female
  Weight: 100.68 kg

DRUGS (11)
  1. BYETTA [Suspect]
     Indication: TYPE 2 DIABETES MELLITUS
     Dosage: 280 UG, UNK
     Route: 051
     Dates: start: 20100112, end: 20100112
  2. BYETTA [Suspect]
     Dosage: 5 UG, 2/D
     Route: 058
     Dates: start: 20100112, end: 20100117
  3. METFORMIN HCL [Concomitant]
     Indication: TYPE 2 DIABETES MELLITUS
     Dosage: 850 MG, 2/D
     Route: 048
  4. AMARYL [Concomitant]
     Dosage: 4 MG, DAILY (1/D)
  5. JANUVIA [Concomitant]
     Indication: TYPE 2 DIABETES MELLITUS
     Dosage: UNK, UNK
  6. ACTOS [Concomitant]
     Dosage: UNK, UNK
  7. DIOVAN [Concomitant]
     Indication: BLOOD PRESSURE INCREASED
  8. POTASSIUM [Concomitant]
  9. ATENOLOL [Concomitant]
     Indication: BLOOD PRESSURE
  10. PRILOSEC [Concomitant]
     Indication: GASTROOESOPHAGEAL REFLUX DISEASE
  11. OTHER RESPIRATORY SYSTEM PRODUCTS [Concomitant]

REACTIONS (8)
  - ACCIDENTAL OVERDOSE [None]
  - BLOOD GLUCOSE DECREASED [None]
  - BURNING SENSATION [None]
  - FLUSHING [None]
  - NAUSEA [None]
  - PALPITATIONS [None]
  - PANIC REACTION [None]
  - VOMITING [None]
